FAERS Safety Report 23722768 (Version 1)
Quarter: 2024Q2

REPORT INFORMATION
  Report Type: Spontaneous
  Country: US (occurrence: US)
  Receive Date: 20240409
  Receipt Date: 20240409
  Transmission Date: 20240716
  Serious: Yes (Hospitalization, Other)
  Sender: FDA-Public Use
  Company Number: US-PFIZER INC-PV202400044515

PATIENT
  Age: 57 Year
  Sex: Male
  Weight: 123.38 kg

DRUGS (33)
  1. MEDROL [Suspect]
     Active Substance: METHYLPREDNISOLONE
     Dosage: UNK
  2. TACROLIMUS [Suspect]
     Active Substance: TACROLIMUS
     Dosage: 0.5 MG
  3. JAKAFI [Suspect]
     Active Substance: RUXOLITINIB
     Indication: Non-Hodgkin^s lymphoma
     Dosage: 5 MG, 2X/DAY
     Route: 048
     Dates: start: 20180101
  4. JAKAFI [Suspect]
     Active Substance: RUXOLITINIB
     Dosage: 5 MG, 2X/DAY
     Route: 048
     Dates: start: 20210623
  5. JAKAFI [Suspect]
     Active Substance: RUXOLITINIB
     Dosage: 5 MG, 2X/DAY
     Route: 048
  6. JAKAFI [Suspect]
     Active Substance: RUXOLITINIB
     Dosage: 5 MG, 2X/DAY
     Route: 048
  7. JAKAFI [Suspect]
     Active Substance: RUXOLITINIB
     Dosage: 5 MG, 2X/DAY
     Route: 048
  8. JAKAFI [Suspect]
     Active Substance: RUXOLITINIB
     Dosage: 5 MG, 2X/DAY
     Route: 048
  9. JAKAFI [Suspect]
     Active Substance: RUXOLITINIB
     Dosage: 5 MG, 2X/DAY
     Route: 048
  10. CALQUENCE [Suspect]
     Active Substance: ACALABRUTINIB
     Dosage: 100 MG
  11. PREDNISONE [Suspect]
     Active Substance: PREDNISONE
     Dosage: UNK
  12. ACETAMINOPHEN [Concomitant]
     Active Substance: ACETAMINOPHEN
  13. ENULOSE [Concomitant]
     Active Substance: LACTULOSE
  14. ADDERALL [Concomitant]
     Active Substance: AMPHETAMINE ASPARTATE\AMPHETAMINE SULFATE\DEXTROAMPHETAMINE SACCHARATE\DEXTROAMPHETAMINE SULFATE
  15. MAGNESIUM [Concomitant]
     Active Substance: MAGNESIUM
  16. DOCUSATE SOD [Concomitant]
  17. VITAMIN D NOS [Concomitant]
     Active Substance: VITAMIN D NOS
  18. TUMS [Concomitant]
     Active Substance: CALCIUM CARBONATE
  19. DEXTROAMPHETAMINE [Concomitant]
     Active Substance: DEXTROAMPHETAMINE
  20. HYDROCODONE [Concomitant]
     Active Substance: HYDROCODONE
  21. MONTELUKAST [Concomitant]
     Active Substance: MONTELUKAST SODIUM
  22. NOVOLIN N [Concomitant]
     Active Substance: INSULIN HUMAN
  23. OZEMPIC [Concomitant]
     Active Substance: SEMAGLUTIDE
  24. PANTOPRAZOLE [Concomitant]
     Active Substance: PANTOPRAZOLE
  25. POSACONAZOLE [Concomitant]
     Active Substance: POSACONAZOLE
  26. ROSUVASTATIN [Concomitant]
     Active Substance: ROSUVASTATIN
  27. HYDROCHLOROTHIAZIDE [Concomitant]
     Active Substance: HYDROCHLOROTHIAZIDE
  28. VITAMIN B6 [Concomitant]
     Active Substance: PYRIDOXINE HYDROCHLORIDE
  29. INSULIN NOS [Concomitant]
     Active Substance: INSULIN NOS
  30. GUAR GUM [Concomitant]
     Active Substance: GUAR GUM
  31. ISOPHANE INSULIN [Concomitant]
     Active Substance: INSULIN NOS
  32. SEMAGLUTIDE [Concomitant]
     Active Substance: SEMAGLUTIDE
  33. PYRIDOXINE HYDROCHLORIDE [Concomitant]
     Active Substance: PYRIDOXINE HYDROCHLORIDE

REACTIONS (69)
  - COVID-19 [Unknown]
  - Nephrolithiasis [Recovering/Resolving]
  - Disease recurrence [Recovering/Resolving]
  - Prostatomegaly [Unknown]
  - Bone marrow transplant [Unknown]
  - Volvulus [Unknown]
  - Narcolepsy [Unknown]
  - Weight fluctuation [Unknown]
  - Neoplasm [Unknown]
  - Fall [Unknown]
  - Rib fracture [Unknown]
  - Blood glucose increased [Unknown]
  - Blood testosterone decreased [Unknown]
  - Blood immunoglobulin A decreased [Unknown]
  - Blood immunoglobulin G decreased [Unknown]
  - Blood immunoglobulin M decreased [Unknown]
  - Gingival bleeding [Unknown]
  - Gingival pain [Unknown]
  - Memory impairment [Unknown]
  - Fatigue [Unknown]
  - Constipation [Recovered/Resolved]
  - Dizziness [Unknown]
  - Coccydynia [Unknown]
  - Musculoskeletal pain [Unknown]
  - Pruritus [Unknown]
  - Amnesia [Unknown]
  - Abdominal distension [Unknown]
  - Hypersensitivity [Unknown]
  - Brain fog [Unknown]
  - Blood creatinine increased [Unknown]
  - Glomerular filtration rate decreased [Unknown]
  - Faeces soft [Unknown]
  - Blood creatinine abnormal [Unknown]
  - Dyspnoea [Unknown]
  - Bradyphrenia [Unknown]
  - Asthenia [Unknown]
  - Somnolence [Unknown]
  - Malaise [Unknown]
  - Nasal crusting [Unknown]
  - Sinus disorder [Unknown]
  - Tongue disorder [Unknown]
  - Ageusia [Unknown]
  - Early satiety [Unknown]
  - Balance disorder [Unknown]
  - Muscle spasms [Unknown]
  - Pain [Unknown]
  - Discouragement [Unknown]
  - Impaired quality of life [Unknown]
  - Time perception altered [Unknown]
  - Attention deficit hyperactivity disorder [Unknown]
  - Diarrhoea [Unknown]
  - Blood pressure fluctuation [Unknown]
  - Vertigo positional [Unknown]
  - Respiratory syncytial virus infection [Unknown]
  - Vision blurred [Unknown]
  - Gastrooesophageal reflux disease [Unknown]
  - Disturbance in attention [Unknown]
  - Blood uric acid increased [Unknown]
  - Red blood cell count decreased [Unknown]
  - Haematocrit decreased [Unknown]
  - Platelet count decreased [Unknown]
  - Mean platelet volume increased [Unknown]
  - Arthropathy [Unknown]
  - Joint injury [Unknown]
  - Arthrodesis [Unknown]
  - Joint stiffness [Unknown]
  - Nephropathy [Unknown]
  - Procedural pain [Unknown]
  - Product dose omission in error [Unknown]

NARRATIVE: CASE EVENT DATE: 20210623
